FAERS Safety Report 17997471 (Version 1)
Quarter: 2020Q3

REPORT INFORMATION
  Report Type: Report from Study
  Country: US (occurrence: US)
  Receive Date: 20200709
  Receipt Date: 20200709
  Transmission Date: 20201103
  Serious: Yes (Other)
  Sender: FDA-Public Use
  Company Number: US-GILEAD-2020-0480270

PATIENT
  Age: 39 Year
  Sex: Female

DRUGS (6)
  1. AMBRISENTAN [Suspect]
     Active Substance: AMBRISENTAN
     Indication: PULMONARY ARTERIAL HYPERTENSION
     Dosage: 5 MG, QD
     Route: 065
     Dates: start: 20200116
  2. AMFETAMINE;DEXAMFETAMINE [Concomitant]
  3. NAPROXEN. [Concomitant]
     Active Substance: NAPROXEN
  4. ADCIRCA [Concomitant]
     Active Substance: TADALAFIL
  5. NUVARING [Concomitant]
     Active Substance: ETHINYL ESTRADIOL\ETONOGESTREL
  6. TYVASO [Concomitant]
     Active Substance: TREPROSTINIL

REACTIONS (2)
  - Escherichia infection [Unknown]
  - Dyspepsia [Not Recovered/Not Resolved]
